FAERS Safety Report 10692992 (Version 1)
Quarter: 2015Q1

REPORT INFORMATION
  Report Type: Spontaneous
  Country: US (occurrence: None)
  Receive Date: 20150105
  Receipt Date: 20150105
  Transmission Date: 20150720
  Serious: Yes (Hospitalization, Disabling, Other)
  Sender: FDA-Public Use
  Company Number: None

PATIENT
  Age: 75 Year
  Sex: Male

DRUGS (1)
  1. DONEPEZIL 10 MG [Suspect]
     Active Substance: DONEPEZIL HYDROCHLORIDE
     Indication: MEMORY IMPAIRMENT
     Dosage: 1/2 TABLET 2-3 TIMES PER WEEK TAKEN BY MOUTH
     Route: 048
     Dates: start: 20130901, end: 20130927

REACTIONS (12)
  - Bradycardia [None]
  - Transient ischaemic attack [None]
  - Eyelid oedema [None]
  - Asthenia [None]
  - Somnolence [None]
  - Tremor [None]
  - Oedema peripheral [None]
  - Parkinson^s disease [None]
  - Cerebrovascular accident [None]
  - Haemorrhage intracranial [None]
  - Subdural haemorrhage [None]
  - Insomnia [None]

NARRATIVE: CASE EVENT DATE: 20131003
